FAERS Safety Report 6056861-6 (Version None)
Quarter: 2009Q1

REPORT INFORMATION
  Report Type: 
  Country: None (occurrence: None)
  Receive Date: 20090129
  Receipt Date: 20090121
  Transmission Date: 20090719
  Serious: Yes (Hospitalization, Congenital Anomaly)
  Sender: FDA-Public Use
  Company Number: A0748191A

PATIENT
  Sex: Female
  Weight: 1 kg

DRUGS (3)
  1. PAXIL [Suspect]
     Indication: DEPRESSION
     Dates: start: 20070101, end: 20070101
  2. PAROXETINE HCL [Suspect]
     Indication: DRUG USE FOR UNKNOWN INDICATION
     Dosage: 30MG UNKNOWN
     Dates: start: 20040121, end: 20040827
  3. PAXIL CR [Suspect]
     Indication: DRUG USE FOR UNKNOWN INDICATION
     Dosage: 37.5MG UNKNOWN
     Dates: start: 20030813, end: 20040114

REACTIONS (22)
  - APGAR SCORE LOW [None]
  - APNOEA [None]
  - BLOOD OSMOLARITY DECREASED [None]
  - BRADYCARDIA NEONATAL [None]
  - CARDIAC DISORDER [None]
  - CONGENITAL HYPOTHYROIDISM [None]
  - DRUG EXPOSURE DURING PREGNANCY [None]
  - DYSMORPHISM [None]
  - ELECTROLYTE IMBALANCE [None]
  - FEEDING DISORDER [None]
  - FOETAL GROWTH RETARDATION [None]
  - HAEMOLYTIC ANAEMIA [None]
  - HYPERBILIRUBINAEMIA [None]
  - HYPONATRAEMIA [None]
  - JAUNDICE NEONATAL [None]
  - MAGNESIUM METABOLISM DISORDER [None]
  - MATERNAL DRUGS AFFECTING FOETUS [None]
  - MULTIPLE CONGENITAL ABNORMALITIES [None]
  - PATENT DUCTUS ARTERIOSUS [None]
  - PREMATURE BABY [None]
  - RESPIRATORY DISTRESS [None]
  - THROMBOCYTOPENIA NEONATAL [None]
